FAERS Safety Report 7782583-7 (Version None)
Quarter: 2011Q3

REPORT INFORMATION
  Report Type: 
  Country: None (occurrence: None)
  Receive Date: 20110923
  Receipt Date: 20110916
  Transmission Date: 20111222
  Serious: Yes (Life-Threatening, Hospitalization, Other)
  Sender: FDA-Public Use
  Company Number: 2010SP046931

PATIENT
  Age: 27 Year
  Sex: Female
  Weight: 63.5036 kg

DRUGS (1)
  1. NUVARING [Suspect]
     Indication: CONTRACEPTION
     Dates: start: 20080101, end: 20080901

REACTIONS (4)
  - DEEP VEIN THROMBOSIS [None]
  - PALPITATIONS [None]
  - WEIGHT INCREASED [None]
  - FUNGAL INFECTION [None]
